FAERS Safety Report 16175152 (Version 4)
Quarter: 2019Q4

REPORT INFORMATION
  Report Type: Spontaneous
  Country: US (occurrence: US)
  Receive Date: 20190409
  Receipt Date: 20191011
  Transmission Date: 20200122
  Serious: Yes (Death)
  Sender: FDA-Public Use
  Company Number: US-PFIZER INC-2016565743

PATIENT
  Age: 67 Year
  Sex: Male
  Weight: 86.17 kg

DRUGS (3)
  1. VFEND [Suspect]
     Active Substance: VORICONAZOLE
     Indication: SYSTEMIC CANDIDA
     Dosage: 200 MG, 2X/DAY
     Route: 048
     Dates: start: 2016
  2. VFEND [Suspect]
     Active Substance: VORICONAZOLE
     Indication: LUNG TRANSPLANT REJECTION
     Dosage: 400 MG, 2X/DAY
     Route: 048
  3. VFEND [Suspect]
     Active Substance: VORICONAZOLE
     Indication: CYTOMEGALOVIRUS INFECTION

REACTIONS (3)
  - Off label use [Unknown]
  - Death [Fatal]
  - Hypoacusis [Unknown]
